FAERS Safety Report 19190281 (Version 1)
Quarter: 2021Q2

REPORT INFORMATION
  Report Type: Spontaneous
  Country: US (occurrence: US)
  Receive Date: 20210428
  Receipt Date: 20210428
  Transmission Date: 20210717
  Serious: No
  Sender: FDA-Public Use
  Company Number: US-BEH-2021130708

PATIENT

DRUGS (1)
  1. HIZENTRA [Suspect]
     Active Substance: HUMAN IMMUNOGLOBULIN G
     Dosage: UNK
     Route: 065
     Dates: start: 20210410

REACTIONS (7)
  - Abdominal distension [Unknown]
  - Abdominal pain [Recovering/Resolving]
  - Infusion site pain [Unknown]
  - Infusion site erythema [Unknown]
  - Diarrhoea [Unknown]
  - Infusion site warmth [Unknown]
  - Throat irritation [Recovered/Resolved]

NARRATIVE: CASE EVENT DATE: 202104
